FAERS Safety Report 4996122-7 (Version None)
Quarter: 2006Q2

REPORT INFORMATION
  Report Type: 
  Country: None (occurrence: None)
  Receive Date: 20060504
  Receipt Date: 20060421
  Transmission Date: 20061013
  Serious: Yes (Death)
  Sender: FDA-Public Use
  Company Number: 216561

PATIENT
  Age: 66 Year
  Sex: Male
  Weight: 92 kg

DRUGS (21)
  1. RITUXIMAB            (RITUXIMAB ) [Suspect]
     Indication: CHRONIC LYMPHOCYTIC LEUKAEMIA
     Dosage: 500 MG/M2, Q28D, INTRAVENOUS
     Route: 042
     Dates: start: 20050407, end: 20050521
  2. CYCLOPHOSPHAMIDE [Suspect]
     Indication: CHRONIC LYMPHOCYTIC LEUKAEMIA
     Dosage: 250 MG/M2, Q28D, INTRAVENOUS
     Route: 042
     Dates: start: 20050408, end: 20050521
  3. FLUDARABINE [Suspect]
     Indication: CHRONIC LYMPHOCYTIC LEUKAEMIA
     Dosage: 25 MG/M2, Q28D, INTRAVENOUS
     Route: 042
     Dates: start: 20050408, end: 20050521
  4. MYCOCYST (GENERIC COMPONENT (S) [Suspect]
  5. METOPROLOL TARTRATE [Concomitant]
  6. MONO-MACK DEPOT      (ISOSORBIDE MONONITRATE) [Concomitant]
  7. ALLOPURINOL [Concomitant]
  8. NORVASC [Concomitant]
  9. VALIUM [Concomitant]
  10. VORICONAZOLE (VORICONAZOLE) [Concomitant]
  11. ENALAPRIL MALEATE [Concomitant]
  12. VANCOMYCIN HYDROCHLORIDE [Concomitant]
  13. SALINE INFUSION (SODIUM CHLORIDE) [Concomitant]
  14. FINASTERIDE [Concomitant]
  15. ACICLOVIRUM (ACYCLOVIR) [Concomitant]
  16. CIPROFLOXACIN HCL (CIPROFLOXACIN HYDROCHLORIDE) [Concomitant]
  17. SULFAMERAZIN W TRIMETHOPRIM   (SULFAMERAZINE, TRIMETHOPRIM) [Concomitant]
  18. ACETAMINOPHEN [Concomitant]
  19. LORATADINE [Concomitant]
  20. MOXIFLOXACIN HCL [Concomitant]
  21. CLARITHROMYCIN [Concomitant]

REACTIONS (33)
  - ACTIVATED PARTIAL THROMBOPLASTIN TIME PROLONGED [None]
  - ANAEMIA [None]
  - BACTERIA SPUTUM IDENTIFIED [None]
  - BILE DUCT STONE [None]
  - BRONCHITIS [None]
  - CARDIAC MURMUR [None]
  - CHOLELITHIASIS [None]
  - CITROBACTER INFECTION [None]
  - CONDITION AGGRAVATED [None]
  - ENTEROCOCCAL INFECTION [None]
  - GASTROINTESTINAL HAEMORRHAGE [None]
  - GRANULOCYTOPENIA [None]
  - HAEMATEMESIS [None]
  - HAEMOPTYSIS [None]
  - HEPATIC ENZYME INCREASED [None]
  - HEPATOMEGALY [None]
  - HYPOTENSION [None]
  - INFLAMMATION [None]
  - INTERNATIONAL NORMALISED RATIO INCREASED [None]
  - LABORATORY TEST ABNORMAL [None]
  - LUNG DISORDER [None]
  - NEUTROPHIL PERCENTAGE INCREASED [None]
  - PNEUMONIA [None]
  - PROTHROMBIN TIME PROLONGED [None]
  - PROTHROMBIN TIME SHORTENED [None]
  - PYREXIA [None]
  - RENAL CYST [None]
  - SEPTIC SHOCK [None]
  - SPLENOMEGALY [None]
  - THERAPY NON-RESPONDER [None]
  - THROMBOCYTOPENIA [None]
  - UNEVALUABLE EVENT [None]
  - WHITE BLOOD CELL COUNT DECREASED [None]
